FAERS Safety Report 11217582 (Version 2)
Quarter: 2015Q3

REPORT INFORMATION
  Report Type: Spontaneous
  Country: BR (occurrence: BR)
  Receive Date: 20150625
  Receipt Date: 20150706
  Transmission Date: 20151125
  Serious: Yes (Other)
  Sender: FDA-Public Use
  Company Number: PHHY2015BR075442

PATIENT
  Age: 51 Year
  Sex: Female

DRUGS (2)
  1. AFINITOR [Suspect]
     Active Substance: EVEROLIMUS
     Indication: PRODUCT USED FOR UNKNOWN INDICATION
     Dosage: 10 MG, QD
     Route: 048
     Dates: start: 20150610
  2. SANDOSTATIN LAR DEPOT [Suspect]
     Active Substance: OCTREOTIDE ACETATE
     Indication: NEUROENDOCRINE CARCINOMA
     Dosage: 30 MG, QMO (EVER 28 DAYS)
     Route: 030

REACTIONS (6)
  - Hepatic neoplasm [Recovering/Resolving]
  - Lymphadenopathy [Recovering/Resolving]
  - Hypotonia [Recovering/Resolving]
  - Hyperglycaemia [Recovering/Resolving]
  - Stomatitis [Recovering/Resolving]
  - Abdominal pain upper [Recovering/Resolving]
